FAERS Safety Report 15130353 (Version 3)
Quarter: 2018Q3

REPORT INFORMATION
  Report Type: Spontaneous
  Country: TW (occurrence: TW)
  Receive Date: 20180711
  Receipt Date: 20180824
  Transmission Date: 20181010
  Serious: Yes (Death, Hospitalization, Other)
  Sender: FDA-Public Use
  Company Number: TW-JNJFOC-20180637906

PATIENT
  Age: 70 Year
  Sex: Male
  Weight: 64.8 kg

DRUGS (1)
  1. ZYTIGA [Suspect]
     Active Substance: ABIRATERONE ACETATE
     Indication: PROSTATE CANCER METASTATIC
     Route: 048
     Dates: start: 20161222, end: 20180301

REACTIONS (5)
  - Death [Fatal]
  - Pneumonia [Unknown]
  - Pleural effusion [Unknown]
  - Prostate cancer metastatic [Unknown]
  - Hyponatraemia [Unknown]

NARRATIVE: CASE EVENT DATE: 20180418
